FAERS Safety Report 4277957-5 (Version None)
Quarter: 2004Q1

REPORT INFORMATION
  Report Type: 
  Country: None (occurrence: None)
  Receive Date: 20040121
  Receipt Date: 20030225
  Transmission Date: 20041129
  Serious: Yes (Other)
  Sender: FDA-Public Use
  Company Number: 2003-01-3866

PATIENT
  Sex: Male

DRUGS (2)
  1. SUBUTEX [Suspect]
     Indication: DRUG DEPENDENCE
     Dosage: 8 MG QD SUBLINGUAL
     Route: 060
  2. VALPROATE SODIUM [Concomitant]

REACTIONS (2)
  - DRUG HYPERSENSITIVITY [None]
  - EPILEPSY [None]
